FAERS Safety Report 9321726 (Version 1)
Quarter: 2013Q2

REPORT INFORMATION
  Report Type: Spontaneous
  Country: MX (occurrence: None)
  Receive Date: 20130529
  Receipt Date: 20130529
  Transmission Date: 20140414
  Serious: Yes (Death)
  Sender: FDA-Public Use
  Company Number: ENTC2013-0196

PATIENT
  Age: 76 Year
  Sex: Male

DRUGS (2)
  1. STALEVO (LEVODOPA, CARBIDOPA, ENTACAPONE) [Suspect]
     Dosage: DOSE OF 2 (UNIT NOT SPECIFIED)
  2. EXELON (RIVASTIGMINE) [Suspect]
     Indication: SENILE DEMENTIA
     Route: 062
     Dates: start: 2013

REACTIONS (1)
  - Coma [None]
